FAERS Safety Report 9636796 (Version 14)
Quarter: 2016Q4

REPORT INFORMATION
  Report Type: Report from Study
  Country: CA (occurrence: CA)
  Receive Date: 20131022
  Receipt Date: 20161228
  Transmission Date: 20170207
  Serious: Yes (Other)
  Sender: FDA-Public Use
  Company Number: CA-ROCHE-1291510

PATIENT
  Age: 34 Year
  Sex: Female
  Weight: 52.2 kg

DRUGS (13)
  1. PREDNISONE. [Suspect]
     Active Substance: PREDNISONE
     Indication: PEMPHIGUS
     Route: 065
     Dates: start: 201202, end: 201402
  2. TYLENOL [Concomitant]
     Active Substance: ACETAMINOPHEN
     Route: 065
  3. DIPHENHYDRAMINE HCL [Concomitant]
     Active Substance: DIPHENHYDRAMINE HYDROCHLORIDE
     Indication: PREMEDICATION
     Route: 048
     Dates: start: 20131009
  4. RITUXAN [Suspect]
     Active Substance: RITUXIMAB
     Route: 042
     Dates: start: 20150223
  5. RITUXAN [Suspect]
     Active Substance: RITUXIMAB
     Route: 042
     Dates: start: 20150312
  6. IMURAN [Concomitant]
     Active Substance: AZATHIOPRINE
  7. METHYLPREDNISOLONE. [Concomitant]
     Active Substance: METHYLPREDNISOLONE
     Indication: PREMEDICATION
     Route: 042
     Dates: start: 20131009
  8. RITUXAN [Suspect]
     Active Substance: RITUXIMAB
     Indication: PEMPHIGUS
     Route: 042
     Dates: start: 20131009
  9. AZATHIOPRINE. [Suspect]
     Active Substance: AZATHIOPRINE
     Indication: PEMPHIGUS
     Dosage: 100MG TO 150MG
     Route: 065
     Dates: start: 201207
  10. ACETAMINOPHEN. [Concomitant]
     Active Substance: ACETAMINOPHEN
     Indication: PREMEDICATION
     Route: 048
     Dates: start: 20131009
  11. CIPRALEX [Concomitant]
     Active Substance: ESCITALOPRAM OXALATE
  12. RITUXAN [Suspect]
     Active Substance: RITUXIMAB
     Route: 042
     Dates: start: 20131023
  13. TOPIRAMATE. [Concomitant]
     Active Substance: TOPIRAMATE

REACTIONS (18)
  - Pain [Not Recovered/Not Resolved]
  - Seizure [Unknown]
  - Weight decreased [Unknown]
  - Drug ineffective [Unknown]
  - Product use issue [Unknown]
  - Respiratory rate increased [Recovered/Resolved]
  - Pemphigus [Not Recovered/Not Resolved]
  - Anorectal infection [Recovering/Resolving]
  - Pain [Unknown]
  - Influenza [Unknown]
  - Infusion related reaction [Unknown]
  - Cough [Recovering/Resolving]
  - Odynophagia [Not Recovered/Not Resolved]
  - Back pain [Recovering/Resolving]
  - Lip ulceration [Recovering/Resolving]
  - Vomiting [Recovered/Resolved]
  - Memory impairment [Recovered/Resolved]
  - Swelling [Not Recovered/Not Resolved]

NARRATIVE: CASE EVENT DATE: 20131010
